FAERS Safety Report 4472933-1 (Version None)
Quarter: 2004Q4

REPORT INFORMATION
  Report Type: 
  Country: None (occurrence: None)
  Receive Date: 20041007
  Receipt Date: 20041007
  Transmission Date: 20050328
  Serious: Yes (Life-Threatening, Hospitalization)
  Sender: FDA-Public Use
  Company Number: None

PATIENT
  Age: 66 Year
  Sex: Male
  Weight: 86 kg

DRUGS (1)
  1. ALTEPLASE (TPA) [Suspect]
     Indication: CEREBROVASCULAR ACCIDENT
     Dosage: 86 MG IV
     Route: 042
     Dates: start: 20040701

REACTIONS (1)
  - HAEMORRHAGIC STROKE [None]
